FAERS Safety Report 18137208 (Version 3)
Quarter: 2020Q3

REPORT INFORMATION
  Report Type: Spontaneous
  Country: US (occurrence: US)
  Receive Date: 20200811
  Receipt Date: 20200824
  Transmission Date: 20201103
  Serious: Yes (Hospitalization, Other)
  Sender: FDA-Public Use
  Company Number: US-PFIZER INC-2020019154

PATIENT
  Age: 75 Year
  Sex: Female
  Weight: 90.72 kg

DRUGS (2)
  1. GABAPENTIN. [Suspect]
     Active Substance: GABAPENTIN
     Dosage: 900 MG, DAILY (1 CAP ORAL AM AND 2 IN PM)
     Route: 048
  2. GABAPENTIN. [Suspect]
     Active Substance: GABAPENTIN
     Dosage: 100 MG, 2X/DAY
     Dates: end: 202007

REACTIONS (14)
  - Neoplasm swelling [Unknown]
  - Hyperthyroidism [Unknown]
  - Scar [Unknown]
  - Neoplasm skin [Unknown]
  - Influenza like illness [Unknown]
  - Breast cancer [Unknown]
  - Sepsis [Unknown]
  - Joint swelling [Unknown]
  - Thrombosis [Unknown]
  - Pain in extremity [Unknown]
  - Radiation injury [Unknown]
  - Malignant melanoma [Unknown]
  - Peripheral swelling [Unknown]
  - Weight increased [Unknown]

NARRATIVE: CASE EVENT DATE: 2019
